FAERS Safety Report 6341787-0 (Version None)
Quarter: 2009Q3

REPORT INFORMATION
  Report Type: 
  Country: None (occurrence: None)
  Receive Date: 20090904
  Receipt Date: 20090903
  Transmission Date: 20100115
  Serious: Yes (Hospitalization)
  Sender: FDA-Public Use
  Company Number: US-WYE-H10455809

PATIENT
  Age: 63 Year
  Sex: Female
  Weight: 81.72 kg

DRUGS (8)
  1. ADVIL [Suspect]
     Indication: PAIN
     Dosage: 2 LIQUI-GELS AS NEEDED
     Route: 048
  2. ADVIL [Suspect]
     Dosage: 2 LIQUI-GELS
     Route: 048
     Dates: start: 20090801, end: 20090802
  3. VASOTEC [Concomitant]
     Indication: HYPERTENSION
     Dosage: UNKNOWN
     Route: 065
  4. CARDIZEM [Concomitant]
     Indication: HYPERTENSION
     Dosage: UNKNOWN
     Route: 065
  5. ASPIRIN [Concomitant]
     Indication: DRUG USE FOR UNKNOWN INDICATION
     Dosage: UNSPECIFIED DOSE DAILY
     Route: 065
  6. LIPITOR [Concomitant]
     Indication: BLOOD CHOLESTEROL
     Dosage: UNKNOWN
     Route: 065
  7. LANTUS [Concomitant]
     Indication: DIABETES MELLITUS
     Dosage: UNKNOWN
     Route: 065
  8. RANITIDINE HYDROCHLORIDE [Concomitant]
     Indication: DRUG USE FOR UNKNOWN INDICATION
     Dosage: UNKNOWN
     Route: 065

REACTIONS (4)
  - DIARRHOEA [None]
  - DYSGEUSIA [None]
  - NAUSEA [None]
  - VOMITING [None]
